FAERS Safety Report 4798324-1 (Version None)
Quarter: 2005Q4

REPORT INFORMATION
  Report Type: 
  Country: None (occurrence: None)
  Receive Date: 20051011
  Receipt Date: 20050922
  Transmission Date: 20060501
  Serious: Yes (Death)
  Sender: FDA-Public Use
  Company Number: JP_050807334

PATIENT
  Age: 64 Year
  Sex: Male

DRUGS (6)
  1. ZYPREXA [Suspect]
     Indication: SCHIZOPHRENIA
     Dosage: 20 MG DAY
     Dates: start: 20050618
  2. RISPERDAL [Concomitant]
  3. CHLORPROMAZINE HCL [Concomitant]
  4. LEVOTOMIN (LEVOMEPROMAZINE MALEATE) [Concomitant]
  5. TINELAC (SENNOSIDE A+B) [Concomitant]
  6. LENDORM [Concomitant]

REACTIONS (1)
  - DEATH [None]
